FAERS Safety Report 4463842-2 (Version None)
Quarter: 2004Q3

REPORT INFORMATION
  Report Type: 
  Country: None (occurrence: None)
  Receive Date: 20040929
  Receipt Date: 20040915
  Transmission Date: 20050211
  Serious: Yes (Disabling)
  Sender: FDA-Public Use
  Company Number: 2004CG01837

PATIENT
  Age: 70 Year
  Sex: Female

DRUGS (1)
  1. NAROPIN [Suspect]
     Indication: LOCAL ANAESTHESIA
     Dosage: 20 ML ONCE PNEU
     Dates: start: 20040701, end: 20040701

REACTIONS (2)
  - BLINDNESS UNILATERAL [None]
  - RETINAL ISCHAEMIA [None]
